FAERS Safety Report 10744467 (Version 1)
Quarter: 2015Q1

REPORT INFORMATION
  Report Type: Spontaneous
  Country: US (occurrence: None)
  Receive Date: 20150126
  Receipt Date: 20150126
  Transmission Date: 20150721
  Serious: Yes (Disabling)
  Sender: FDA-Public Use
  Company Number: None

PATIENT
  Age: 48 Year
  Sex: Female
  Weight: 90.27 kg

DRUGS (1)
  1. TOPIRAMATE 100 MG [Suspect]
     Active Substance: TOPIRAMATE
     Indication: MIGRAINE
     Route: 048
     Dates: start: 20130101, end: 20140530

REACTIONS (4)
  - Visual acuity reduced [None]
  - Vision blurred [None]
  - Impaired driving ability [None]
  - Diplopia [None]

NARRATIVE: CASE EVENT DATE: 20130725
